FAERS Safety Report 4499064-9 (Version None)
Quarter: 2004Q3

REPORT INFORMATION
  Report Type: 
  Country: None (occurrence: None)
  Receive Date: 20040927
  Receipt Date: 20040601
  Transmission Date: 20050211
  Serious: No
  Sender: FDA-Public Use
  Company Number: USA040669023

PATIENT
  Age: 43 Year
  Sex: Female
  Weight: 73 kg

DRUGS (5)
  1. STRATTERA [Suspect]
     Indication: ATTENTION DEFICIT/HYPERACTIVITY DISORDER
     Dosage: 80 MG DAY
     Dates: start: 20040501
  2. DILANTIN [Concomitant]
  3. ZYRTEC [Concomitant]
  4. THYROID TAB [Concomitant]
  5. SINGULAIR [Concomitant]

REACTIONS (3)
  - FEELING JITTERY [None]
  - IRRITABILITY [None]
  - NAUSEA [None]
